FAERS Safety Report 18202269 (Version 2)
Quarter: 2020Q3

REPORT INFORMATION
  Report Type: Spontaneous
  Country: US (occurrence: US)
  Receive Date: 20200827
  Receipt Date: 20200903
  Transmission Date: 20201103
  Serious: Yes (Hospitalization)
  Sender: FDA-Public Use
  Company Number: US-PFIZER INC-2020320365

PATIENT
  Age: 36 Year
  Sex: Male

DRUGS (3)
  1. VANCOMYCIN HCL [Suspect]
     Active Substance: VANCOMYCIN HYDROCHLORIDE
     Indication: OSTEONECROSIS OF JAW
     Dosage: UNK (APPROXIMATELY 1 YEAR OF INTERMITTENT THERAPY)
  2. FLUTICASONE + SALMETEROL [Concomitant]
     Active Substance: FLUTICASONE FUROATE\SALMETEROL XINAFOATE
     Indication: ASTHMA
     Dosage: UNK, 2X/DAY (500/50 UG, 1 PUFF)
  3. ALBUTEROL SULFATE. [Concomitant]
     Active Substance: ALBUTEROL SULFATE
     Indication: ASTHMA
     Dosage: UNK, AS NEEDED (2 PUFFS EVERY 4 TO 6 HOURS)

REACTIONS (3)
  - Product use in unapproved indication [Unknown]
  - Asthma [Unknown]
  - Off label use [Unknown]
